FAERS Safety Report 8605065 (Version 4)
Quarter: 2013Q1

REPORT INFORMATION
  Report Type: Spontaneous
  Country: None (occurrence: None)
  Receive Date: 20120529
  Receipt Date: 20121005
  Transmission Date: 20140127
  Serious: Yes (Hospitalization)
  Sender: FDA-Public Use
  Company Number: AUR-APL-2012-02261

PATIENT
  Age: 36 Year
  Sex: Female

DRUGS (5)
  1. CITALOPRAM HYDROBROMIDE [Suspect]
     Indication: PRODUCT USED FOR UNKNOWN INDICATION
     Dosage: 20 MG (20 MG, 1 IN 1 D), 40 MG (40 MG, 1 IN 1 D)
     Dates: start: 20120419
  2. PALIPERIDONE [Suspect]
     Indication: PSYCHOTIC DISORDER
     Dosage: (100 MG), INTRAMUSCULAR
     Route: 030
     Dates: start: 20120329
  3. DIAZEPAM (DIAZEPAM) [Concomitant]
  4. LORAZEPAM (LORAZEPAM) [Concomitant]
  5. PROMETHAZINE (PROMETHAZINE) [Concomitant]

REACTIONS (3)
  - Agitation [None]
  - Psychotic disorder [None]
  - Extrapyramidal disorder [None]
